FAERS Safety Report 8310394-2 (Version None)
Quarter: 2012Q2

REPORT INFORMATION
  Report Type: 
  Country: None (occurrence: None)
  Receive Date: 20120425
  Receipt Date: 20120411
  Transmission Date: 20120825
  Serious: Yes (Hospitalization)
  Sender: FDA-Public Use
  Company Number: GB-RANBAXY-2012R1-55654

PATIENT

DRUGS (14)
  1. ACETAMINOPHEN AND CODEINE PHOSPHATE [Concomitant]
     Indication: PAIN
     Dosage: AS REQUIRED (2 DF, QID)
     Route: 048
  2. TRIMETHOPRIM [Concomitant]
     Indication: INFECTION
     Dosage: ACUTE COURSE (200 MG, BID)
     Route: 048
     Dates: start: 20120222, end: 20120225
  3. DEXAMETHASONE [Concomitant]
     Indication: PRODUCT USED FOR UNKNOWN INDICATION
     Dosage: 2 MG, QD
     Route: 048
  4. MS CONTIN [Concomitant]
     Indication: PAIN
     Dosage: 20 MG, BID
     Route: 048
  5. ORAMORPH SR [Concomitant]
     Indication: BREAKTHROUGH PAIN
     Dosage: AS REQUIRED (5 ML)
     Route: 048
  6. GAVISCON [Concomitant]
     Indication: DYSPEPSIA
     Dosage: AS REQUIRED (10 ML, TID)
     Route: 065
  7. NAPROXEN [Suspect]
     Indication: PRODUCT USED FOR UNKNOWN INDICATION
     Dosage: 250 MG, BID
     Route: 048
     Dates: end: 20120307
  8. LACTULOSE [Concomitant]
     Indication: CONSTIPATION
     Dosage: 15 ML, BID
     Route: 065
  9. FERROUS SULFATE TAB [Concomitant]
     Indication: ANAEMIA
     Dosage: 200 MG, TID
     Route: 048
  10. LAXIDO [Concomitant]
     Indication: CONSTIPATION
     Dosage: ONE OR TWO SACHETS TAKEN ONCE DAILY
     Route: 065
  11. ADCAL-D3 [Concomitant]
     Indication: PRODUCT USED FOR UNKNOWN INDICATION
     Dosage: 1 DF, BID
     Route: 048
     Dates: end: 20120307
  12. DOMPERIDONE [Concomitant]
     Indication: NAUSEA
     Dosage: AS REQUIRED (10 MG, TID)
     Route: 048
  13. EXEMESTANE [Concomitant]
     Indication: BREAST CANCER
     Dosage: 25 MG, QD
     Route: 048
  14. OMEPRAZOLE [Concomitant]
     Indication: PRODUCT USED FOR UNKNOWN INDICATION
     Dosage: 20 MG, QD
     Route: 048

REACTIONS (2)
  - GASTROINTESTINAL HAEMORRHAGE [None]
  - HAEMOGLOBIN DECREASED [None]
